FAERS Safety Report 8268074-8 (Version None)
Quarter: 2012Q2

REPORT INFORMATION
  Report Type: 
  Country: None (occurrence: None)
  Receive Date: 20120409
  Receipt Date: 20120330
  Transmission Date: 20120825
  Serious: Yes (Hospitalization)
  Sender: FDA-Public Use
  Company Number: US-BAYER-2011-098656

PATIENT
  Age: 36 Year
  Sex: Female
  Weight: 74.83 kg

DRUGS (2)
  1. YAZ [Suspect]
     Indication: PREMENSTRUAL SYNDROME
  2. YAZ [Suspect]
     Indication: CONTRACEPTION
     Dosage: UNK, QD
     Route: 048
     Dates: start: 20081101, end: 20100301

REACTIONS (8)
  - HEADACHE [None]
  - DIARRHOEA [None]
  - ABDOMINAL PAIN [None]
  - ABDOMINAL DISTENSION [None]
  - CHOLECYSTITIS [None]
  - VOMITING [None]
  - MUSCLE SPASMS [None]
  - DYSPEPSIA [None]
